FAERS Safety Report 6346874-9 (Version None)
Quarter: 2009Q3

REPORT INFORMATION
  Report Type: 
  Country: None (occurrence: None)
  Receive Date: 20090909
  Receipt Date: 20090909
  Transmission Date: 20100115
  Serious: Yes (Hospitalization)
  Sender: FDA-Public Use
  Company Number: None

PATIENT
  Age: 79 Year
  Sex: Male
  Weight: 58.8 kg

DRUGS (1)
  1. COLCHICINE [Suspect]
     Indication: GOUT
     Dosage: 0.6MG TAB EVERY DAY PO
     Route: 048
     Dates: start: 20090519, end: 20090903

REACTIONS (7)
  - ASTHENIA [None]
  - BLOOD CREATINE PHOSPHOKINASE INCREASED [None]
  - DIZZINESS [None]
  - HEPATIC ENZYME INCREASED [None]
  - HYPOPHAGIA [None]
  - MYALGIA [None]
  - RENAL FAILURE ACUTE [None]
